FAERS Safety Report 23698581 (Version 3)
Quarter: 2025Q1

REPORT INFORMATION
  Report Type: Spontaneous
  Country: US (occurrence: US)
  Receive Date: 20240402
  Receipt Date: 20250303
  Transmission Date: 20250409
  Serious: No
  Sender: SANOFI AVENTIS
  Company Number: US-SA-SAC20240326000708

PATIENT
  Age: 64 Year
  Sex: Female

DRUGS (1)
  1. DUPIXENT [Suspect]
     Active Substance: DUPILUMAB
     Indication: Nasal polyps
     Dosage: 300 MG, QOW
     Route: 058
     Dates: end: 202408

REACTIONS (6)
  - Nasal congestion [Not Recovered/Not Resolved]
  - Hyposmia [Recovering/Resolving]
  - Nasal polyps [Unknown]
  - Rebound effect [Unknown]
  - Injection site erythema [Unknown]
  - Injection site pain [Unknown]
